FAERS Safety Report 7547679-3 (Version None)
Quarter: 2011Q2

REPORT INFORMATION
  Report Type: 
  Country: None (occurrence: None)
  Receive Date: 20110614
  Receipt Date: 20110609
  Transmission Date: 20111010
  Serious: Yes (Hospitalization, Other)
  Sender: FDA-Public Use
  Company Number: AU-AMGEN-AUSCT2010007286

PATIENT
  Age: 32 Year
  Sex: Female

DRUGS (13)
  1. HEPARIN [Concomitant]
     Dosage: 3000 IU, UNK
     Route: 042
  2. IRON POLYMALTOSE [Concomitant]
     Dosage: 100 MG, QWK
     Route: 042
  3. SENSIPAR [Suspect]
     Indication: HYPERPARATHYROIDISM SECONDARY
     Dosage: 30 MG, UNK
     Route: 048
     Dates: start: 20101008, end: 20101008
  4. LERCANIDIPINE [Concomitant]
     Dosage: 10 MG, UNK
  5. PANTOPRAZOLE [Concomitant]
     Dosage: 40 MG, UNK
  6. ARANESP [Concomitant]
     Dosage: 60 A?G, UNK
     Route: 042
  7. ANTIHYPERTENSIVES [Concomitant]
     Dosage: 400 A?G, UNK
  8. CALCIUM CARBONATE [Concomitant]
     Dosage: 600 MG, UNK
  9. CINACALCET HYDROCHLORIDE [Suspect]
     Indication: HYPERPARATHYROIDISM SECONDARY
     Dosage: UNK
  10. DOMPERIDONE [Concomitant]
     Dosage: UNK
  11. CALCITRIOL [Concomitant]
     Dosage: 0.25 A?G, TID
     Route: 048
  12. METOPROLOL [Concomitant]
     Dosage: 25 MG, BID
  13. SEVELAMER [Concomitant]
     Dosage: 800 MG, TID

REACTIONS (1)
  - ANXIETY [None]
